FAERS Safety Report 14306591 (Version 1)
Quarter: 2017Q4

REPORT INFORMATION
  Report Type: Spontaneous
  Country: FR (occurrence: FR)
  Receive Date: 20171220
  Receipt Date: 20171220
  Transmission Date: 20180321
  Serious: Yes (Other)
  Sender: FDA-Public Use
  Company Number: FR-MERCK KGAA-2037446

PATIENT
  Age: 43 Year
  Sex: Female

DRUGS (1)
  1. NOVOTHYROX [Suspect]
     Active Substance: LEVOTHYROXINE SODIUM
     Indication: PRODUCT USED FOR UNKNOWN INDICATION

REACTIONS (17)
  - Iron deficiency [None]
  - Diarrhoea [None]
  - Headache [None]
  - Fatigue [None]
  - Apathy [None]
  - Back pain [None]
  - Disturbance in attention [None]
  - Blood thyroid stimulating hormone increased [None]
  - Depressed mood [None]
  - Libido decreased [None]
  - Loss of personal independence in daily activities [None]
  - Menometrorrhagia [Recovered/Resolved]
  - General physical health deterioration [None]
  - Neck pain [None]
  - Amnesia [None]
  - Hypokinesia [None]
  - Discomfort [None]

NARRATIVE: CASE EVENT DATE: 20170825
